FAERS Safety Report 17751158 (Version 1)
Quarter: 2020Q2

REPORT INFORMATION
  Report Type: Spontaneous
  Country: US (occurrence: US)
  Receive Date: 20200506
  Receipt Date: 20200506
  Transmission Date: 20200714
  Serious: Yes (Hospitalization, Other)
  Sender: FDA-Public Use
  Company Number: None

PATIENT
  Age: 63 Year
  Sex: Male
  Weight: 126 kg

DRUGS (23)
  1. TOCILIZUMAB. [Suspect]
     Active Substance: TOCILIZUMAB
     Indication: COVID-19 TREATMENT
     Dosage: ?          OTHER FREQUENCY:ONCE;?
     Route: 040
     Dates: start: 20200417, end: 20200417
  2. CISATRACURIUM. [Concomitant]
     Active Substance: CISATRACURIUM
  3. TOCILIZUMAB. [Suspect]
     Active Substance: TOCILIZUMAB
     Indication: ADJUVANT THERAPY
     Dosage: ?          OTHER FREQUENCY:ONCE;?
     Route: 040
     Dates: start: 20200417, end: 20200417
  4. ENOXAPARIN [Concomitant]
     Active Substance: ENOXAPARIN
  5. GABAPENTIN. [Concomitant]
     Active Substance: GABAPENTIN
  6. BISACODYL. [Concomitant]
     Active Substance: BISACODYL
  7. DEXMEDETOMIDINE. [Concomitant]
     Active Substance: DEXMEDETOMIDINE
  8. DOCUSATE [Concomitant]
     Active Substance: DOCUSATE
  9. AZITHROMYCIN ANHYDROUS. [Concomitant]
     Active Substance: AZITHROMYCIN ANHYDROUS
  10. FUROSEMIDE. [Concomitant]
     Active Substance: FUROSEMIDE
  11. GLUCAGON. [Concomitant]
     Active Substance: GLUCAGON
  12. ACETAMINOPHEN. [Concomitant]
     Active Substance: ACETAMINOPHEN
  13. ALTEPLASE. [Concomitant]
     Active Substance: ALTEPLASE
  14. CHLORHEXIDINE [Concomitant]
     Active Substance: CHLORHEXIDINE
  15. ALBUTEROL. [Concomitant]
     Active Substance: ALBUTEROL
  16. BUMETANIDE. [Concomitant]
     Active Substance: BUMETANIDE
  17. CEFEPIME [Concomitant]
     Active Substance: CEFEPIME HYDROCHLORIDE
  18. FENTANYL. [Concomitant]
     Active Substance: FENTANYL
  19. GUAIFENESIN. [Concomitant]
     Active Substance: GUAIFENESIN
  20. ACETAZOLAMIDE. [Concomitant]
     Active Substance: ACETAZOLAMIDE
  21. AMLODIPINE [Concomitant]
     Active Substance: AMLODIPINE BESYLATE
  22. BENZONATATE. [Concomitant]
     Active Substance: BENZONATATE
  23. FOLIC ACID. [Concomitant]
     Active Substance: FOLIC ACID

REACTIONS (4)
  - Off label use [None]
  - Respiratory failure [None]
  - Pneumonia staphylococcal [None]
  - Staphylococcal bacteraemia [None]

NARRATIVE: CASE EVENT DATE: 20200422
